FAERS Safety Report 8052025-5 (Version None)
Quarter: 2012Q1

REPORT INFORMATION
  Report Type: 
  Country: None (occurrence: None)
  Receive Date: 20120112
  Receipt Date: 20120104
  Transmission Date: 20120608
  Serious: No
  Sender: FDA-Public Use
  Company Number: SPI201200003

PATIENT
  Age: 70 Year
  Sex: Male

DRUGS (3)
  1. AMITIZA [Suspect]
     Indication: CONSTIPATION
     Dosage: 8 MCG, BID, ORAL
     Route: 048
     Dates: start: 20111230
  2. VICODIN [Concomitant]
  3. OXYCODONE HCL [Concomitant]

REACTIONS (11)
  - DIZZINESS [None]
  - ABNORMAL SENSATION IN EYE [None]
  - MUSCLE SPASMS [None]
  - SENSATION OF PRESSURE [None]
  - DYSPNOEA [None]
  - FLATULENCE [None]
  - HEADACHE [None]
  - DIARRHOEA [None]
  - INAPPROPRIATE SCHEDULE OF DRUG ADMINISTRATION [None]
  - CONFUSIONAL STATE [None]
  - CHEST DISCOMFORT [None]
